FAERS Safety Report 10485484 (Version 3)
Quarter: 2014Q4

REPORT INFORMATION
  Report Type: Report from Study
  Country: US (occurrence: US)
  Receive Date: 20140930
  Receipt Date: 20141104
  Transmission Date: 20150528
  Serious: Yes (Hospitalization)
  Sender: FDA-Public Use
  Company Number: US-EXELIXIS-CABO-14004784

PATIENT
  Age: 50 Year
  Sex: Female

DRUGS (2)
  1. DEXATRONE [Concomitant]
  2. CABOZANTINIB [Suspect]
     Active Substance: CABOZANTINIB
     Indication: THYROID CANCER
     Dosage: 140 MG, QD
     Route: 048
     Dates: start: 20140828, end: 20141030

REACTIONS (8)
  - Abdominal distension [Unknown]
  - Flatulence [Unknown]
  - Asthenia [Unknown]
  - Hypercalcaemia [Unknown]
  - Dry skin [Unknown]
  - Heart rate increased [Unknown]
  - Pneumonia [Unknown]
  - Decubitus ulcer [Unknown]

NARRATIVE: CASE EVENT DATE: 2014
